FAERS Safety Report 13845210 (Version 1)
Quarter: 2017Q3

REPORT INFORMATION
  Report Type: Spontaneous
  Country: HR (occurrence: HR)
  Receive Date: 20170808
  Receipt Date: 20170808
  Transmission Date: 20171127
  Serious: Yes (Hospitalization)
  Sender: FDA-Public Use
  Company Number: HR-ASTRAZENECA-2017SE79728

PATIENT
  Sex: Female

DRUGS (4)
  1. SIOFOR [Suspect]
     Active Substance: METFORMIN HYDROCHLORIDE
     Dosage: 850 MG X 15 TABLETS, NON-AZ DRUG
     Route: 048
     Dates: start: 20170611, end: 20170611
  2. ALPRAZOLAM. [Suspect]
     Active Substance: ALPRAZOLAM
     Dosage: 1 MG X 60 TABLETS WORST CASE, THEY BROUGHT EMPTY BLISTERS, BELUPO
     Route: 048
     Dates: start: 20170611, end: 20170611
  3. SEROQUEL [Suspect]
     Active Substance: QUETIAPINE FUMARATE
     Dosage: 100 MG X 10 TABLETS
     Route: 048
     Dates: start: 20170611, end: 20170611
  4. LORAZEPAM. [Suspect]
     Active Substance: LORAZEPAM
     Dosage: 2.5 MG X 42 TABLETS, BELUPO
     Route: 048
     Dates: start: 20170611, end: 20170611

REACTIONS (2)
  - Intentional overdose [Unknown]
  - Suicide attempt [Unknown]

NARRATIVE: CASE EVENT DATE: 20170611
